FAERS Safety Report 24413350 (Version 1)
Quarter: 2024Q4

REPORT INFORMATION
  Report Type: Spontaneous
  Country: JP (occurrence: JP)
  Receive Date: 20241008
  Receipt Date: 20241008
  Transmission Date: 20250115
  Serious: Yes (Hospitalization, Other)
  Sender: GLAXOSMITHKLINE
  Company Number: JP-GSK-JP2024JPN120616

PATIENT

DRUGS (3)
  1. LAMICTAL [Suspect]
     Active Substance: LAMOTRIGINE
     Indication: Depression
     Dosage: UNK
  2. LAMICTAL [Suspect]
     Active Substance: LAMOTRIGINE
     Dosage: UNK, 25 MG TABLETS AT UP TO 46 TABLETS
  3. VENLAFAXINE [Concomitant]
     Active Substance: VENLAFAXINE HYDROCHLORIDE
     Indication: Depression
     Dosage: UNK

REACTIONS (7)
  - Suicide attempt [Unknown]
  - Confusional state [Unknown]
  - Aggression [Unknown]
  - Contusion [Unknown]
  - Haemorrhage subcutaneous [Unknown]
  - Intentional overdose [Unknown]
  - Product use in unapproved indication [Unknown]
